FAERS Safety Report 10098234 (Version 1)
Quarter: 2014Q2

REPORT INFORMATION
  Report Type: Spontaneous
  Country: US (occurrence: US)
  Receive Date: 20140423
  Receipt Date: 20140423
  Transmission Date: 20141212
  Serious: No
  Sender: FDA-Public Use
  Company Number: US-NOVEN-14US008590

PATIENT
  Age: 62 Year
  Sex: Female
  Weight: 66.67 kg

DRUGS (1)
  1. BRISDELLE [Suspect]
     Indication: HOT FLUSH
     Dosage: 7.5 UNK, UNK
     Route: 048
     Dates: start: 20131205, end: 20131205

REACTIONS (4)
  - Dizziness [Recovered/Resolved]
  - Nausea [Recovered/Resolved]
  - Vomiting [Recovered/Resolved]
  - Dysarthria [Recovered/Resolved]
